FAERS Safety Report 7617933-5 (Version None)
Quarter: 2011Q3

REPORT INFORMATION
  Report Type: 
  Country: None (occurrence: None)
  Receive Date: 20110718
  Receipt Date: 20110701
  Transmission Date: 20111222
  Serious: Yes (Hospitalization)
  Sender: FDA-Public Use
  Company Number: PHHY2011JP59748

PATIENT
  Age: 64 Year
  Sex: Male

DRUGS (3)
  1. DIOVAN HCT [Suspect]
     Indication: HYPERTENSION
     Dosage: 1 DF, UNK
     Route: 048
  2. ATELEC [Suspect]
     Route: 048
  3. NORVASC [Suspect]
     Route: 048

REACTIONS (1)
  - DRUG ERUPTION [None]
